FAERS Safety Report 10554621 (Version 2)
Quarter: 2014Q4

REPORT INFORMATION
  Report Type: Report from Study
  Country: CN (occurrence: CN)
  Receive Date: 20141030
  Receipt Date: 20141105
  Transmission Date: 20150529
  Serious: Yes (Hospitalization)
  Sender: FDA-Public Use
  Company Number: CN-PFIZER INC-2014295895

PATIENT
  Age: 62 Year
  Sex: Female
  Weight: 50 kg

DRUGS (5)
  1. AXITINIB [Suspect]
     Active Substance: AXITINIB
     Indication: METASTATIC RENAL CELL CARCINOMA
     Dosage: 5 MG, 2X/DAY
     Route: 048
     Dates: start: 20100415
  2. LEVOFLOXACIN. [Concomitant]
     Active Substance: LEVOFLOXACIN
     Indication: COUGH
     Dosage: 0.5 MG, DAILY
     Dates: start: 20140901, end: 20140906
  3. CEFODIZIME [Concomitant]
     Indication: COUGH
     Dosage: 2 G, 2X/DAY
     Dates: start: 20140901, end: 20140906
  4. LEVOFLOXACIN. [Concomitant]
     Active Substance: LEVOFLOXACIN
     Indication: INFLAMMATION
  5. AMBROXOL HCL [Concomitant]
     Indication: COUGH
     Dosage: 30 MG, DAILY
     Dates: start: 20140901, end: 20140906

REACTIONS (1)
  - Bronchostenosis [Recovered/Resolved]

NARRATIVE: CASE EVENT DATE: 20140909
